FAERS Safety Report 10161193 (Version 9)
Quarter: 2015Q2

REPORT INFORMATION
  Report Type: Spontaneous
  Country: US (occurrence: US)
  Receive Date: 20140508
  Receipt Date: 20150402
  Transmission Date: 20150821
  Serious: Yes (Hospitalization, Other)
  Sender: FDA-Public Use
  Company Number: US-ALLERGAN-1409000US

PATIENT
  Age: 26 Year
  Sex: Female

DRUGS (5)
  1. BOTOX COSMETIC [Suspect]
     Active Substance: ONABOTULINUMTOXINA
     Indication: SKIN WRINKLING
     Dosage: UNK
     Dates: start: 20130806, end: 20130806
  2. VALTREX [Concomitant]
     Active Substance: VALACYCLOVIR HYDROCHLORIDE
     Indication: HERPES SIMPLEX
     Dosage: 1000 MG, QD
     Dates: start: 20061013
  3. JUVEDERM ULTRA XC [Suspect]
     Active Substance: HYALURONIC ACID\LIDOCAINE HYDROCHLORIDE
     Indication: SKIN WRINKLING
     Dosage: 1 ML, SINGLE
  4. BOTOX COSMETIC [Suspect]
     Active Substance: ONABOTULINUMTOXINA
     Indication: SKIN WRINKLING
     Dosage: 20 UNITS, SINGLE
     Dates: start: 20130222, end: 20130222
  5. BOTOX COSMETIC [Suspect]
     Active Substance: ONABOTULINUMTOXINA
     Indication: SKIN WRINKLING
     Dosage: 4 UNITS, SINGLE
     Dates: start: 20130222, end: 20130222

REACTIONS (24)
  - Botulism [Unknown]
  - Facial pain [Unknown]
  - Influenza like illness [Recovered/Resolved]
  - Myalgia [Recovered/Resolved]
  - Rash [Not Recovered/Not Resolved]
  - Muscular weakness [Unknown]
  - Feeling abnormal [Unknown]
  - Night sweats [Unknown]
  - Oral mucosal exfoliation [Unknown]
  - Palpitations [Unknown]
  - Fatigue [Unknown]
  - Adverse event [Unknown]
  - Lymphadenopathy [Unknown]
  - Weight decreased [Unknown]
  - Muscular weakness [Unknown]
  - Extraocular muscle paresis [Unknown]
  - Guillain-Barre syndrome [Recovering/Resolving]
  - Gait disturbance [Unknown]
  - General physical condition abnormal [Unknown]
  - Muscle tightness [Unknown]
  - Paraesthesia [Unknown]
  - Hypoaesthesia [Unknown]
  - Headache [Unknown]
  - Diarrhoea [Recovered/Resolved]

NARRATIVE: CASE EVENT DATE: 201303
